FAERS Safety Report 12837065 (Version 2)
Quarter: 2017Q1

REPORT INFORMATION
  Report Type: Spontaneous
  Country: FR (occurrence: FR)
  Receive Date: 20161011
  Receipt Date: 20170327
  Transmission Date: 20170428
  Serious: Yes (Hospitalization, Other)
  Sender: FDA-Public Use
  Company Number: FR-SA-2016SA182939

PATIENT
  Age: 38 Year
  Sex: Male

DRUGS (4)
  1. DOLIPRANE [Concomitant]
     Active Substance: ACETAMINOPHEN
  2. LEMTRADA [Suspect]
     Active Substance: ALEMTUZUMAB
     Indication: RELAPSING-REMITTING MULTIPLE SCLEROSIS
     Route: 041
     Dates: start: 20160801, end: 20160805
  3. ZELITREX [Suspect]
     Active Substance: VALACYCLOVIR HYDROCHLORIDE
     Route: 048
     Dates: start: 20160802, end: 20160901
  4. JOSIR [Suspect]
     Active Substance: TAMSULOSIN
     Route: 048
     Dates: start: 20160812, end: 20160901

REACTIONS (1)
  - Pulmonary embolism [Recovered/Resolved]

NARRATIVE: CASE EVENT DATE: 20160828
